FAERS Safety Report 5162178-4 (Version None)
Quarter: 2006Q4

REPORT INFORMATION
  Report Type: 
  Country: None (occurrence: None)
  Receive Date: 20061121
  Receipt Date: 20061106
  Transmission Date: 20070319
  Serious: Yes (Disabling)
  Sender: FDA-Public Use
  Company Number: 2006002117

PATIENT
  Age: 61 Year
  Sex: Female

DRUGS (4)
  1. TARCEVA [Suspect]
     Indication: BRONCHIAL CARCINOMA
     Dosage: 150 MG (QD), ORAL
     Route: 048
     Dates: start: 20060625
  2. ZOMETA [Concomitant]
  3. SOPHIDONE (HYDROMORPHONE) [Concomitant]
  4. INEXIUM  (ESOMEPRAZOLE) [Concomitant]

REACTIONS (3)
  - ARTHRALGIA [None]
  - BLEPHARITIS [None]
  - RASH [None]
